FAERS Safety Report 5206218-2 (Version None)
Quarter: 2006Q4

REPORT INFORMATION
  Report Type: 
  Country: None (occurrence: None)
  Receive Date: 20061026
  Receipt Date: 20060707
  Transmission Date: 20070319
  Serious: No
  Sender: FDA-Public Use
  Company Number: 2006066152

PATIENT
  Sex: Female

DRUGS (11)
  1. LYRICA [Suspect]
     Indication: NEURALGIA
     Dosage: 150 MG (75 MG, 2 IN 1 D);
     Dates: start: 20060101
  2. THYROID TAB [Suspect]
     Indication: DRUG USE FOR UNKNOWN INDICATION
  3. FLUCONAZOLE [Suspect]
     Indication: ILL-DEFINED DISORDER
  4. MUSCLE RELAXANTS (MUSCLE RELAXANTS) [Suspect]
     Indication: DRUG USE FOR UNKNOWN INDICATION
  5. RESTORIL [Suspect]
     Indication: SLEEP DISORDER
     Dosage: UNK
  6. METROCREAM [Suspect]
     Indication: ROSACEA
  7. CELEBREX [Concomitant]
  8. ROBAXIN [Concomitant]
  9. METROGEL [Concomitant]
  10. ZANAFLEX [Concomitant]
  11. OPIOIDS [Concomitant]

REACTIONS (3)
  - DRUG INTERACTION [None]
  - ONYCHOMYCOSIS [None]
  - VISION BLURRED [None]
